FAERS Safety Report 8900029 (Version 1)
Quarter: 2012Q4

REPORT INFORMATION
  Report Type: 
  Country: US (occurrence: US)
  Receive Date: 20121109
  Receipt Date: 20121109
  Transmission Date: 20130627
  Serious: Yes (Other)
  Sender: FDA-Public Use
  Company Number: PHEH2012US021971

PATIENT
  Sex: Female
  Weight: 64.85 kg

DRUGS (1)
  1. DIOVAN [Suspect]
     Dosage: 1 DF, QD

REACTIONS (1)
  - Diabetes mellitus [Unknown]
